FAERS Safety Report 8576661-2 (Version None)
Quarter: 2012Q3

REPORT INFORMATION
  Report Type: 
  Country: None (occurrence: None)
  Receive Date: 20120807
  Receipt Date: 20120731
  Transmission Date: 20120928
  Serious: Yes (Hospitalization)
  Sender: FDA-Public Use
  Company Number: BE-PFIZER INC-2012186825

PATIENT
  Age: 60 Year
  Sex: Male
  Weight: 70.5 kg

DRUGS (5)
  1. HYDROCORTISONE [Concomitant]
     Indication: BLOOD CORTICOTROPHIN DECREASED
     Dosage: UNK
     Dates: start: 19970425
  2. TESTOSTERONE [Concomitant]
     Indication: BLOOD LUTEINISING HORMONE DECREASED
     Dosage: UNK
     Dates: start: 19850601
  3. SANDOSTATIN LAR [Concomitant]
     Indication: SECRETORY ADENOMA OF PITUITARY
     Dosage: UNK
     Dates: start: 20020920
  4. GENOTROPIN [Suspect]
     Dosage: 0.7 MG, 7/WK
     Route: 058
     Dates: start: 20050225
  5. TESTOSTERONE [Concomitant]
     Indication: BLOOD FOLLICLE STIMULATING HORMONE DECREASED

REACTIONS (1)
  - HYPOTHALAMO-PITUITARY DISORDER [None]
